FAERS Safety Report 7533077-5 (Version None)
Quarter: 2011Q2

REPORT INFORMATION
  Report Type: 
  Country: None (occurrence: None)
  Receive Date: 20110608
  Receipt Date: 20110526
  Transmission Date: 20111010
  Serious: Yes (Other)
  Sender: FDA-Public Use
  Company Number: US-ELI_LILLY_AND_COMPANY-US201103008504

PATIENT
  Sex: Female

DRUGS (14)
  1. FORTEO [Suspect]
     Dosage: 20 UG, QD
  2. SYNTHROID [Concomitant]
     Dosage: 125 UG, UNK
  3. FORTEO [Suspect]
     Indication: OSTEOPOROSIS
     Dosage: UNK, UNKNOWN
     Route: 065
     Dates: start: 20100801
  4. NAPROXEN [Concomitant]
     Dosage: 375 MG, PRN
  5. CALCIUM CARBONATE [Concomitant]
  6. ASPIRIN [Concomitant]
     Dosage: 81 MG, UNK
  7. KLONOPIN [Concomitant]
     Dosage: 1 MG, UNK
  8. LASIX [Concomitant]
     Dosage: 20 MG, PRN
  9. VITAMIN D [Concomitant]
  10. OMEPRAZOLE [Concomitant]
     Indication: GASTROOESOPHAGEAL REFLUX DISEASE
     Dosage: 20 MG, UNK
  11. IMDUR [Concomitant]
     Dosage: 30 MG, UNK
  12. LOVASTATIN [Concomitant]
     Indication: BLOOD CHOLESTEROL
     Dosage: 40 MG, UNK
  13. SINGULAIR [Concomitant]
     Dosage: 10 MG, UNK
  14. CLOBETASOL PROPIONATE [Concomitant]

REACTIONS (4)
  - ANXIETY [None]
  - BREAST CANCER METASTATIC [None]
  - MENTAL IMPAIRMENT [None]
  - BURNING SENSATION [None]
